FAERS Safety Report 8843934 (Version 2)
Quarter: 2012Q4

REPORT INFORMATION
  Report Type: 
  Country: US (occurrence: US)
  Receive Date: 20121017
  Receipt Date: 20121224
  Transmission Date: 20130627
  Serious: No
  Sender: FDA-Public Use
  Company Number: US-BIOGENIDEC-2012BI043254

PATIENT
  Age: 25 Year
  Sex: Female

DRUGS (1)
  1. TYSABRI [Suspect]
     Indication: MULTIPLE SCLEROSIS
     Route: 042
     Dates: start: 20120104

REACTIONS (7)
  - Eye movement disorder [Not Recovered/Not Resolved]
  - Conjunctivitis infective [Not Recovered/Not Resolved]
  - Stress [Unknown]
  - Vision blurred [Recovered/Resolved]
  - Fear [Not Recovered/Not Resolved]
  - Scar [Recovered/Resolved]
  - Influenza [Not Recovered/Not Resolved]
